FAERS Safety Report 18033460 (Version 2)
Quarter: 2020Q3

REPORT INFORMATION
  Report Type: Spontaneous
  Country: FR (occurrence: FR)
  Receive Date: 20200716
  Receipt Date: 20200723
  Transmission Date: 20201103
  Serious: Yes (Hospitalization, Other)
  Sender: FDA-Public Use
  Company Number: FR-AMGEN-FRASP2020111316

PATIENT
  Age: 40 Year
  Sex: Female
  Weight: 46 kg

DRUGS (4)
  1. OTEZLA [Suspect]
     Active Substance: APREMILAST
     Indication: NAIL PSORIASIS
     Dosage: UNK
     Route: 065
     Dates: start: 201911, end: 201912
  2. TRAMADOL. [Concomitant]
     Active Substance: TRAMADOL
     Dosage: UNK
     Route: 065
     Dates: start: 20200601
  3. ELIQUIS [Concomitant]
     Active Substance: APIXABAN
     Dosage: UNK
     Route: 065
     Dates: start: 2020
  4. OTEZLA [Suspect]
     Active Substance: APREMILAST
     Dosage: UNK
     Route: 065
     Dates: start: 20200429, end: 2020

REACTIONS (10)
  - Dizziness [Unknown]
  - Discomfort [Unknown]
  - Diarrhoea [Unknown]
  - Deep vein thrombosis [Unknown]
  - Dyspnoea [Unknown]
  - Tachycardia [Unknown]
  - Adverse event [Unknown]
  - Weight decreased [Unknown]
  - Pulmonary embolism [Unknown]
  - Migraine [Unknown]

NARRATIVE: CASE EVENT DATE: 2019
